FAERS Safety Report 10154365 (Version 1)
Quarter: 2014Q2

REPORT INFORMATION
  Report Type: Spontaneous
  Country: US (occurrence: US)
  Receive Date: 20140506
  Receipt Date: 20140506
  Transmission Date: 20141212
  Serious: No
  Sender: FDA-Public Use
  Company Number: US-PFIZER INC-2014121530

PATIENT
  Age: 64 Year
  Sex: Female
  Weight: 53.06 kg

DRUGS (4)
  1. LYRICA [Suspect]
     Indication: FIBROMYALGIA
     Dosage: 75 MG, 2X/DAY
     Dates: start: 20140407, end: 20140420
  2. LYRICA [Suspect]
     Indication: NEURALGIA
     Dosage: 150 MG, 2X/DAY
     Dates: start: 20140421
  3. PREMARIN [Concomitant]
     Indication: HORMONE REPLACEMENT THERAPY
     Dosage: 0.925 MG, DAILY
     Route: 048
  4. CYMBALTA [Concomitant]
     Dosage: 60 MG, DAILY
     Dates: start: 20140407

REACTIONS (4)
  - Mobility decreased [Recovering/Resolving]
  - Headache [Recovering/Resolving]
  - Dry mouth [Recovering/Resolving]
  - Lethargy [Recovering/Resolving]
